FAERS Safety Report 5090314-7 (Version None)
Quarter: 2006Q3

REPORT INFORMATION
  Report Type: 
  Country: None (occurrence: None)
  Receive Date: 20060828
  Receipt Date: 20060714
  Transmission Date: 20061208
  Serious: No
  Sender: FDA-Public Use
  Company Number: US-GLAXOSMITHKLINE-A0612327A

PATIENT
  Age: 44 Year
  Sex: Male

DRUGS (5)
  1. WELLBUTRIN XL [Suspect]
     Indication: DEPRESSION
     Dosage: 150MG PER DAY
     Route: 048
  2. XANAX [Concomitant]
  3. KLONOPIN [Concomitant]
  4. NAVANE [Concomitant]
  5. BENZTROPINE MESYLATE [Concomitant]

REACTIONS (4)
  - DRY MOUTH [None]
  - INSOMNIA [None]
  - LARYNGITIS [None]
  - PHARYNGOLARYNGEAL PAIN [None]
